FAERS Safety Report 5479458-5 (Version None)
Quarter: 2007Q4

REPORT INFORMATION
  Report Type: 
  Country: None (occurrence: None)
  Receive Date: 20071008
  Receipt Date: 20060925
  Transmission Date: 20080405
  Serious: Yes (Hospitalization)
  Sender: FDA-Public Use
  Company Number: FR-BAYER-200610410BFR

PATIENT
  Age: 59 Year
  Sex: Male

DRUGS (33)
  1. SORAFENIB [Suspect]
     Indication: RENAL CELL CARCINOMA STAGE UNSPECIFIED
     Dosage: TOTAL DAILY DOSE: 800 MG  UNIT DOSE: 200 MG
     Route: 048
     Dates: start: 20060307, end: 20060428
  2. SORAFENIB [Suspect]
     Route: 048
  3. SPASFON [Concomitant]
     Indication: ABDOMINAL PAIN
     Route: 048
     Dates: end: 20060401
  4. SPASFON [Concomitant]
     Route: 048
     Dates: start: 20060521, end: 20060523
  5. BIPERIDYS [Concomitant]
     Indication: ABDOMINAL PAIN
     Route: 048
     Dates: end: 20060401
  6. METEOSPASMYL [Concomitant]
     Indication: ABDOMINAL PAIN
     Route: 048
     Dates: end: 20060401
  7. EFFERALGAN CODEINE [Concomitant]
     Indication: ABDOMINAL PAIN
     Route: 048
     Dates: start: 20060404, end: 20060401
  8. DUPHALAC [Concomitant]
     Indication: CONSTIPATION
     Route: 048
     Dates: start: 20060429, end: 20060501
  9. IMOVANE [Concomitant]
     Indication: INSOMNIA
     Route: 048
     Dates: start: 20060430, end: 20060503
  10. LEXOMIL [Concomitant]
     Indication: ANXIETY
     Route: 048
     Dates: start: 20060427
  11. LUBENTYL [Concomitant]
     Indication: ABDOMINAL PAIN
     Dates: start: 20060401, end: 20060401
  12. OXYGEN [Concomitant]
     Indication: RESPIRATORY DISORDER
     Dates: start: 20060503, end: 20060629
  13. MUCOMYST [Concomitant]
     Indication: RESPIRATORY DISORDER
     Dates: start: 20060508, end: 20060516
  14. ACETAMINOPHEN [Concomitant]
     Indication: PAIN
     Dates: start: 20060508, end: 20060519
  15. TOPALGIC [Concomitant]
     Indication: PAIN
     Dates: start: 20060519
  16. MOTILIUM [Concomitant]
     Indication: NAUSEA
     Dates: start: 20060508, end: 20060508
  17. OMEPRAZOLE [Concomitant]
     Indication: GASTROOESOPHAGEAL REFLUX PROPHYLAXIS
     Dates: start: 20060510
  18. PERFALGAN [Concomitant]
     Indication: PAIN
     Dates: start: 20060704
  19. PERFALGAN [Concomitant]
     Dates: start: 20060519, end: 20060521
  20. FORLAX [Concomitant]
     Indication: CONSTIPATION
     Dates: start: 20060702
  21. FORLAX [Concomitant]
     Dates: start: 20060523, end: 20060523
  22. KAYEXALATE [Concomitant]
     Indication: HYPERKALAEMIA
     Dates: start: 20060522, end: 20060524
  23. SOLU-MEDROL [Concomitant]
     Indication: RESPIRATORY DISORDER
     Dates: start: 20060525
  24. SKENAN [Concomitant]
     Indication: PAIN
     Dates: start: 20060629, end: 20060707
  25. SCOBUREN [Concomitant]
     Indication: ABDOMINAL PAIN
     Dates: start: 20060629
  26. TARDYFERON [Concomitant]
     Indication: ANAEMIA
     Dates: start: 20060621, end: 20060601
  27. ACTISKENAN [Concomitant]
     Indication: PAIN
     Dates: start: 20060629
  28. PRIMPERAN [Concomitant]
     Indication: NAUSEA
     Dates: start: 20060703
  29. DEBRIDAT [Concomitant]
     Indication: ABDOMINAL PAIN
     Dates: start: 20060629
  30. ACUPAN [Concomitant]
     Indication: PAIN
     Dates: start: 20060629, end: 20060704
  31. LASIX [Concomitant]
     Indication: OEDEMA
     Dates: start: 20060703, end: 20060703
  32. CITALOPRAM [Concomitant]
     Indication: DEPRESSION
     Dates: start: 20060630, end: 20060702
  33. LACTULOSE [Concomitant]
     Indication: CONSTIPATION
     Dates: start: 20060630, end: 20060702

REACTIONS (1)
  - PULMONARY EMBOLISM [None]
